FAERS Safety Report 7412991-5 (Version None)
Quarter: 2011Q2

REPORT INFORMATION
  Report Type: 
  Country: None (occurrence: None)
  Receive Date: 20110405
  Receipt Date: 20110322
  Transmission Date: 20111010
  Serious: Yes (Other)
  Sender: FDA-Public Use
  Company Number: 2011000829

PATIENT
  Age: 50 Year
  Sex: Male

DRUGS (1)
  1. TARCEVA [Suspect]
     Indication: SQUAMOUS CELL CARCINOMA
     Dosage: MG, ORAL
     Route: 048

REACTIONS (4)
  - RASH [None]
  - PLATELET COUNT DECREASED [None]
  - JAUNDICE [None]
  - HEPATIC FUNCTION ABNORMAL [None]
